FAERS Safety Report 5907940-2 (Version None)
Quarter: 2008Q4

REPORT INFORMATION
  Report Type: 
  Country: None (occurrence: None)
  Receive Date: 20081003
  Receipt Date: 20080923
  Transmission Date: 20090506
  Serious: Yes (Other)
  Sender: FDA-Public Use
  Company Number: CN-PFIZER INC-2008068303

PATIENT
  Age: 70 Year
  Sex: Female

DRUGS (2)
  1. CEFOPERAZONE SODIUM [Suspect]
     Indication: INFECTION
     Route: 042
  2. CLINDAMYCIN HYDROCHLORIDE [Suspect]
     Indication: INFECTION
     Route: 042

REACTIONS (1)
  - HENOCH-SCHONLEIN PURPURA [None]
